FAERS Safety Report 4611906-2 (Version None)
Quarter: 2005Q2

REPORT INFORMATION
  Report Type: 
  Country: None (occurrence: None)
  Receive Date: 20050308
  Receipt Date: 20041216
  Transmission Date: 20051028
  Serious: Yes (Other)
  Sender: FDA-Public Use
  Company Number: 2004UW25604

PATIENT
  Sex: Female

DRUGS (6)
  1. CRESTOR [Suspect]
     Indication: BLOOD CHOLESTEROL INCREASED
  2. CRESTOR [Suspect]
     Indication: BLOOD TRIGLYCERIDES INCREASED
  3. PRAVACHOL [Concomitant]
  4. NIACIN [Concomitant]
  5. LIPITOR [Concomitant]
  6. ZOCOR [Concomitant]

REACTIONS (8)
  - BACK PAIN [None]
  - DRUG TOXICITY [None]
  - FEELING ABNORMAL [None]
  - MUSCLE ATROPHY [None]
  - MYALGIA [None]
  - RESPIRATORY DISTRESS [None]
  - VOMITING [None]
  - WEIGHT INCREASED [None]
